FAERS Safety Report 25213696 (Version 1)
Quarter: 2025Q2

REPORT INFORMATION
  Report Type: Spontaneous
  Country: FR (occurrence: FR)
  Receive Date: 20250418
  Receipt Date: 20250418
  Transmission Date: 20250717
  Serious: Yes (Hospitalization, Other)
  Sender: PFIZER
  Company Number: None

PATIENT
  Age: 55 Year
  Sex: Male
  Weight: 50 kg

DRUGS (2)
  1. INLYTA [Suspect]
     Active Substance: AXITINIB
     Indication: Renal cancer stage II
     Dates: start: 20231019, end: 20240531
  2. KEYTRUDA [Suspect]
     Active Substance: PEMBROLIZUMAB
     Indication: Renal cancer
     Route: 042
     Dates: start: 20231019, end: 20240531

REACTIONS (2)
  - Hypothyroidism [Recovered/Resolved]
  - Adrenal insufficiency [Recovered/Resolved with Sequelae]

NARRATIVE: CASE EVENT DATE: 20240506
